FAERS Safety Report 21509632 (Version 6)
Quarter: 2023Q2

REPORT INFORMATION
  Report Type: Spontaneous
  Country: US (occurrence: US)
  Receive Date: 20221026
  Receipt Date: 20230421
  Transmission Date: 20230721
  Serious: Yes (Other)
  Sender: FDA-Public Use
  Company Number: US-PFIZER INC-PV202200090342

PATIENT
  Age: 52 Year
  Sex: Female

DRUGS (24)
  1. XELJANZ XR [Suspect]
     Active Substance: TOFACITINIB CITRATE
     Indication: Rheumatoid arthritis
     Dosage: UNK
  2. XELJANZ XR [Suspect]
     Active Substance: TOFACITINIB CITRATE
     Dosage: UNK
     Dates: start: 202105
  3. XELJANZ XR [Suspect]
     Active Substance: TOFACITINIB CITRATE
     Dosage: 11 MG, DAILY
     Route: 048
     Dates: start: 2017
  4. ZETIA [Suspect]
     Active Substance: EZETIMIBE
     Dosage: UNK
  5. TRULICITY [Concomitant]
     Active Substance: DULAGLUTIDE
     Dosage: UNK
  6. CYMBALTA [Concomitant]
     Active Substance: DULOXETINE HYDROCHLORIDE
     Dosage: UNK
  7. SINGULAIR [Concomitant]
     Active Substance: MONTELUKAST SODIUM
     Dosage: UNK
  8. ZYRTEC [Concomitant]
     Active Substance: CETIRIZINE HYDROCHLORIDE
     Dosage: UNK
  9. LYRICA [Concomitant]
     Active Substance: PREGABALIN
     Dosage: UNK
  10. VALTREX [Concomitant]
     Active Substance: VALACYCLOVIR HYDROCHLORIDE
     Dosage: UNK
  11. MYRBETRIQ [Concomitant]
     Active Substance: MIRABEGRON
     Dosage: UNK
  12. ACETAMINOPHEN\HYDROCODONE [Concomitant]
     Active Substance: ACETAMINOPHEN\HYDROCODONE
     Dosage: UNK
  13. PHENTERMINE [Concomitant]
     Active Substance: PHENTERMINE
     Dosage: UNK
  14. VITAMIN C [Concomitant]
     Active Substance: ASCORBIC ACID
     Dosage: UNK
  15. FOLIC ACID [Concomitant]
     Active Substance: FOLIC ACID
     Dosage: UNK
  16. BIOTIN [Concomitant]
     Active Substance: BIOTIN
     Dosage: UNK
  17. CYCLOBENZAPRINE [Concomitant]
     Active Substance: CYCLOBENZAPRINE
     Dosage: UNK
  18. FISH OIL [Concomitant]
     Active Substance: FISH OIL
     Dosage: UNK
  19. MORPHINE HYDROCHLORIDE [Concomitant]
     Active Substance: MORPHINE HYDROCHLORIDE
     Dosage: UNK
  20. METFORMIN [Concomitant]
     Active Substance: METFORMIN HYDROCHLORIDE
     Dosage: UNK
  21. CALCIUM [Concomitant]
     Active Substance: CALCIUM
     Dosage: UNK
  22. JANSSEN COVID-19 VACCINE [Concomitant]
     Active Substance: AD26.COV2.S
     Dosage: UNK
  23. EDARBYCLOR [Concomitant]
     Active Substance: AZILSARTAN KAMEDOXOMIL\CHLORTHALIDONE
     Dosage: UNK
  24. MODERNA COVID-19 VACCINE [Concomitant]
     Active Substance: ELASOMERAN
     Dosage: UNK

REACTIONS (7)
  - Renal impairment [Unknown]
  - Product dose omission issue [Unknown]
  - Memory impairment [Unknown]
  - Pain [Unknown]
  - Renal cyst [Not Recovered/Not Resolved]
  - Bone pain [Not Recovered/Not Resolved]
  - Blood cholesterol increased [Unknown]

NARRATIVE: CASE EVENT DATE: 20220101
